FAERS Safety Report 7596790-X (Version None)
Quarter: 2011Q3

REPORT INFORMATION
  Report Type: 
  Country: None (occurrence: None)
  Receive Date: 20110708
  Receipt Date: 20110624
  Transmission Date: 20111222
  Serious: Yes (Hospitalization, Other)
  Sender: FDA-Public Use
  Company Number: GB-MYLANLABS-2011S1013239

PATIENT
  Age: 64 Year
  Sex: Female

DRUGS (2)
  1. STEROIDS [Concomitant]
     Indication: MYASTHENIA GRAVIS
  2. AZATHIOPRINE [Suspect]
     Indication: MYASTHENIA GRAVIS

REACTIONS (5)
  - ENDOCARDITIS [None]
  - LEFT VENTRICULAR FAILURE [None]
  - CORONARY ARTERY DISEASE [None]
  - UPPER RESPIRATORY TRACT INFECTION [None]
  - AORTIC VALVE DISEASE MIXED [None]
